FAERS Safety Report 9114370 (Version 1)
Quarter: 2013Q1

REPORT INFORMATION
  Report Type: Spontaneous
  Country: US (occurrence: US)
  Receive Date: 20130208
  Receipt Date: 20130208
  Transmission Date: 20140127
  Serious: No
  Sender: FDA-Public Use
  Company Number: US-009507513-1302USA002001

PATIENT
  Sex: Female

DRUGS (2)
  1. NEXPLANON [Suspect]
     Dosage: 1 ROD PER EVERY 3 YEARS
     Route: 059
     Dates: start: 20120129, end: 20120129
  2. NEXPLANON [Suspect]
     Dosage: 1 ROD PER EVERY 3 YEARS
     Route: 059
     Dates: start: 20120129

REACTIONS (3)
  - Device difficult to use [Unknown]
  - Product quality issue [Unknown]
  - No adverse event [Unknown]
